FAERS Safety Report 10814255 (Version 1)
Quarter: 2015Q1

REPORT INFORMATION
  Report Type: Spontaneous
  Country: US (occurrence: US)
  Receive Date: 20150218
  Receipt Date: 20150218
  Transmission Date: 20150721
  Serious: No
  Sender: FDA-Public Use
  Company Number: US-ASTRAZENECA-2015SE13173

PATIENT
  Sex: Male
  Weight: 80.3 kg

DRUGS (10)
  1. SYMBICORT [Suspect]
     Active Substance: BUDESONIDE\FORMOTEROL FUMARATE DIHYDRATE
     Indication: CHRONIC OBSTRUCTIVE PULMONARY DISEASE
     Dosage: TWO TIMES A DAY
     Route: 055
     Dates: start: 2014
  2. CRESTOR [Suspect]
     Active Substance: ROSUVASTATIN CALCIUM
     Indication: BLOOD CHOLESTEROL INCREASED
     Route: 048
  3. LISINOPRIL. [Suspect]
     Active Substance: LISINOPRIL
     Indication: HYPERTENSION
     Route: 048
     Dates: start: 2005
  4. AMLODOPINE BESYLATE [Concomitant]
     Indication: BLOOD PRESSURE ABNORMAL
     Route: 048
     Dates: start: 2009
  5. PERCODAN OXYCODONE/ACETAMINOPHEN [Concomitant]
     Indication: SCOLIOSIS
     Dosage: 10-325, AS REQUIRED
     Route: 048
     Dates: start: 2005
  6. LORAZEPAM. [Concomitant]
     Active Substance: LORAZEPAM
     Indication: ANXIETY
     Route: 048
     Dates: start: 2007
  7. LORAZEPAM. [Concomitant]
     Active Substance: LORAZEPAM
     Indication: STRESS
     Route: 048
     Dates: start: 2007
  8. PERCODAN OXYCODONE/ACETAMINOPHEN [Concomitant]
     Indication: PAIN
     Dosage: 10-325, AS REQUIRED
     Route: 048
     Dates: start: 2005
  9. AMLODOPINE BESYLATE [Concomitant]
     Indication: CARDIAC DISORDER
     Route: 048
     Dates: start: 2009
  10. OMEPRAZOLE. [Suspect]
     Active Substance: OMEPRAZOLE
     Indication: GASTROOESOPHAGEAL REFLUX DISEASE
     Route: 048
     Dates: start: 2010

REACTIONS (8)
  - Chronic obstructive pulmonary disease [Unknown]
  - Glucose tolerance impaired [Unknown]
  - Anxiety [Unknown]
  - Dyspnoea [Unknown]
  - Stress [Unknown]
  - Blood cholesterol increased [Unknown]
  - Gastrooesophageal reflux disease [Unknown]
  - Weight decreased [Unknown]
